FAERS Safety Report 5537497-X (Version None)
Quarter: 2007Q4

REPORT INFORMATION
  Report Type: 
  Country: None (occurrence: None)
  Receive Date: 20071207
  Receipt Date: 20071128
  Transmission Date: 20080405
  Serious: Yes (Hospitalization)
  Sender: FDA-Public Use
  Company Number: US-ELI_LILLY_AND_COMPANY-US200711006441

PATIENT
  Sex: Female

DRUGS (2)
  1. HUMALOG [Suspect]
     Dosage: UNK, UNK
     Dates: start: 20030101
  2. PREDNISONE TAB [Concomitant]
     Dates: start: 20071126

REACTIONS (2)
  - BLOOD GLUCOSE INCREASED [None]
  - CORONARY ARTERIAL STENT INSERTION [None]
